FAERS Safety Report 18625509 (Version 2)
Quarter: 2021Q1

REPORT INFORMATION
  Report Type: Spontaneous
  Country: US (occurrence: US)
  Receive Date: 20201216
  Receipt Date: 20210115
  Transmission Date: 20210419
  Serious: No
  Sender: FDA-Public Use
  Company Number: US-MATRIXX INITIATIVES, INC.-2103063

PATIENT
  Age: 45 Year
  Sex: Male
  Weight: 79.55 kg

DRUGS (2)
  1. ZICAM EXTREME CONGESTION RELIEF (OXYMETAZOLINE HYDROCHLORIDE) [Suspect]
     Active Substance: OXYMETAZOLINE HYDROCHLORIDE
     Indication: SINUS CONGESTION
     Dates: start: 20201128, end: 20201128
  2. ZICAM COLD REMEDY NASAL SWABS (HOMEOPATHICS) [Concomitant]
     Active Substance: HOMEOPATHICS\ZINC ACETATE\ZINC GLUCONATE

REACTIONS (3)
  - Nasal discomfort [None]
  - Ageusia [None]
  - Anosmia [None]
